FAERS Safety Report 26037102 (Version 2)
Quarter: 2025Q4

REPORT INFORMATION
  Report Type: Spontaneous
  Country: EU (occurrence: EU)
  Receive Date: 20251112
  Receipt Date: 20251127
  Transmission Date: 20260118
  Serious: Yes (Other)
  Sender: SANDOZ
  Company Number: EU-SANDOZ-SDZ2025NL084522

PATIENT
  Sex: Female

DRUGS (1)
  1. METOPROLOL SUCCINATE [Suspect]
     Active Substance: METOPROLOL SUCCINATE
     Indication: Migraine
     Dosage: UNK
     Route: 065

REACTIONS (3)
  - Fibromyalgia [Unknown]
  - Osteoarthritis [Unknown]
  - Dyspnoea [Not Recovered/Not Resolved]
